FAERS Safety Report 8333954 (Version 2)
Quarter: 2013Q2

REPORT INFORMATION
  Report Type: Spontaneous
  Country: US (occurrence: None)
  Receive Date: 20111130
  Receipt Date: 20120731
  Transmission Date: 20140414
  Serious: Yes (Other)
  Sender: FDA-Public Use
  Company Number: US201107004483

PATIENT
  Age: 46 Year
  Sex: Female

DRUGS (11)
  1. BYETTA [Suspect]
     Dosage: UNK
     Dates: start: 200901, end: 200908
  2. VICODIN (HYDROCODONE BITARTRATE, PARACETAMOL) [Concomitant]
  3. GLUCOPHAGE (METFORMIN HYDROCHLORIDE) [Concomitant]
  4. NEURONTIN (GABAPENTIN) [Concomitant]
  5. PREVACID (LANSOPRAZOLE) [Concomitant]
  6. DIAZEPAM (DIAZEPAM) [Concomitant]
  7. LIPITOR (ATORVASTATIN CALCIUM) [Concomitant]
  8. DOXEPIN (DOXEPIN) (DOXEPIN) [Concomitant]
  9. LIDODERM (LIDOCAINE) [Concomitant]
  10. ASPIRIN (ACETYLSALICYLIC ACID) [Concomitant]
  11. LISINOPRIL (LISINOPRIL) [Concomitant]

REACTIONS (1)
  - PANCREATITIS [None]
